FAERS Safety Report 16270872 (Version 1)
Quarter: 2019Q2

REPORT INFORMATION
  Report Type: Spontaneous
  Country: US (occurrence: US)
  Receive Date: 20190503
  Receipt Date: 20190503
  Transmission Date: 20190711
  Serious: Yes (Other)
  Sender: FDA-Public Use
  Company Number: US-ELI_LILLY_AND_COMPANY-US201904012147

PATIENT
  Sex: Male

DRUGS (1)
  1. PROZAC [Suspect]
     Active Substance: FLUOXETINE HYDROCHLORIDE
     Indication: PRODUCT USED FOR UNKNOWN INDICATION
     Dosage: 60 MG, UNKNOWN
     Route: 065

REACTIONS (6)
  - Anxiety [Unknown]
  - Nausea [Unknown]
  - Serotonin syndrome [Unknown]
  - Tremor [Unknown]
  - Chest discomfort [Unknown]
  - Panic attack [Unknown]
